FAERS Safety Report 5988814-8 (Version None)
Quarter: 2008Q4

REPORT INFORMATION
  Report Type: 
  Country: None (occurrence: None)
  Receive Date: 20081208
  Receipt Date: 20081208
  Transmission Date: 20090506
  Serious: No
  Sender: FDA-Public Use
  Company Number: None

PATIENT
  Age: 51 Year
  Sex: Female
  Weight: 58.9676 kg

DRUGS (1)
  1. KENALOG [Suspect]
     Indication: HAIR GROWTH ABNORMAL
     Dosage: THREE OR FOUR INJECTIONS 1 TIME ID
     Route: 023
     Dates: start: 20080929, end: 20080929

REACTIONS (1)
  - SKIN INDURATION [None]
